FAERS Safety Report 5382991-8 (Version None)
Quarter: 2007Q3

REPORT INFORMATION
  Report Type: 
  Country: None (occurrence: None)
  Receive Date: 20070710
  Receipt Date: 20070706
  Transmission Date: 20080115
  Serious: Yes (Death)
  Sender: FDA-Public Use
  Company Number: B0478075A

PATIENT
  Age: 21 Year
  Sex: Male

DRUGS (7)
  1. PAXIL [Suspect]
     Indication: DEPRESSION
     Dosage: 20MG PER DAY
     Route: 048
     Dates: start: 20061124, end: 20070301
  2. DEPROMEL [Concomitant]
     Dosage: 50MG TWICE PER DAY
     Route: 048
  3. DEPAS [Concomitant]
     Dosage: .5MG PER DAY
     Route: 048
  4. DALIC [Concomitant]
     Route: 048
  5. HALCION [Concomitant]
     Dosage: .5MG PER DAY
     Route: 048
  6. DALMATE [Concomitant]
     Route: 048
  7. NARCOTICS [Concomitant]
     Indication: INTENTIONAL OVERDOSE

REACTIONS (3)
  - COMPLETED SUICIDE [None]
  - INSOMNIA [None]
  - OVERDOSE [None]
